FAERS Safety Report 12085337 (Version 1)
Quarter: 2016Q1

REPORT INFORMATION
  Report Type: Spontaneous
  Country: JP (occurrence: JP)
  Receive Date: 20160217
  Receipt Date: 20160217
  Transmission Date: 20160526
  Serious: Yes (Death)
  Sender: FDA-Public Use
  Company Number: JP-BIOCRYST PHARMACEUTICALS, INC.-2016BCR00028

PATIENT
  Age: 77 Year
  Sex: Male

DRUGS (4)
  1. ERYTHROCIN [Concomitant]
     Active Substance: ERYTHROMYCIN LACTOBIONATE
     Indication: INFLUENZA
     Dosage: UNK
     Route: 048
     Dates: start: 20160130, end: 20160130
  2. SPELEAR [Concomitant]
     Active Substance: FUDOSTEINE
     Indication: INFLUENZA
     Dosage: UNK
     Dates: start: 20160130, end: 20160130
  3. RAPIACTA [Suspect]
     Active Substance: PERAMIVIR
     Indication: INFLUENZA
     Dosage: 300 MG, UNK
     Route: 042
     Dates: start: 20160130, end: 20160130
  4. EMPYNASE [Concomitant]
     Active Substance: PANCRELIPASE
     Indication: INFLUENZA
     Dosage: UNK
     Route: 048
     Dates: start: 20160130, end: 20160130

REACTIONS (1)
  - Death [Fatal]

NARRATIVE: CASE EVENT DATE: 20160130
